FAERS Safety Report 21409285 (Version 4)
Quarter: 2023Q4

REPORT INFORMATION
  Report Type: Report from Study
  Country: CA (occurrence: CA)
  Receive Date: 20221004
  Receipt Date: 20231204
  Transmission Date: 20240110
  Serious: Yes (Hospitalization)
  Sender: FDA-Public Use
  Company Number: CA-MYLANLABS-2022M1032293

PATIENT
  Sex: Male

DRUGS (6)
  1. HULIO [Suspect]
     Active Substance: ADALIMUMAB-FKJP
     Indication: Crohn^s disease
     Dosage: 80 MILLIGRAM, QW (80 MG, EVERY 7 DAYS)
     Route: 065
  2. HULIO [Suspect]
     Active Substance: ADALIMUMAB-FKJP
     Dosage: 80 MILLIGRAM, QW (EVERY 7 DAYS)
     Route: 058
     Dates: start: 20211126
  3. HULIO [Suspect]
     Active Substance: ADALIMUMAB-FKJP
     Dosage: 160 MILLIGRAM, BIWEEKLY
     Route: 058
  4. HULIO [Suspect]
     Active Substance: ADALIMUMAB-FKJP
     Dosage: 40 MILLIGRAM, QW (WEEKLY)
     Route: 058
     Dates: start: 20211126
  5. HULIO [Suspect]
     Active Substance: ADALIMUMAB-FKJP
     Dosage: 160 MILLIGRAM, QW (AT WEEK 0 AND WEEK 1)
     Route: 058
  6. HULIO [Suspect]
     Active Substance: ADALIMUMAB-FKJP
     Dosage: 80 MILLIGRAM, QW (AT WEEK 2 FOR 12 MONTHS)
     Route: 058

REACTIONS (8)
  - Condition aggravated [Unknown]
  - Dehydration [Unknown]
  - Cyst [Unknown]
  - Presyncope [Unknown]
  - Malaise [Unknown]
  - Hot flush [Unknown]
  - Therapy interrupted [Unknown]
  - Off label use [Unknown]
